FAERS Safety Report 20306799 (Version 1)
Quarter: 2022Q1

REPORT INFORMATION
  Report Type: Spontaneous
  Country: US (occurrence: None)
  Receive Date: 20220101
  Receipt Date: 20220101
  Transmission Date: 20220423
  Serious: Yes (Other)
  Sender: FDA-Public Use
  Company Number: None

PATIENT
  Age: 67 Year
  Sex: Female
  Weight: 81 kg

DRUGS (5)
  1. PAXLOVID [Suspect]
     Active Substance: NIRMATRELVIR\RITONAVIR
     Indication: COVID-19
     Dosage: FREQUENCY : TWICE A DAY;?
     Route: 048
     Dates: start: 20211230, end: 20220101
  2. LOSARTAN [Concomitant]
     Active Substance: LOSARTAN
  3. Amlodipine-Bsolate [Concomitant]
  4. Escalotiprim [Concomitant]
  5. ASPIRIN [Concomitant]
     Active Substance: ASPIRIN

REACTIONS (5)
  - Swelling face [None]
  - Urticaria [None]
  - Erythema [None]
  - Pruritus [None]
  - Dysgeusia [None]

NARRATIVE: CASE EVENT DATE: 20220101
